FAERS Safety Report 5520775-8 (Version None)
Quarter: 2007Q4

REPORT INFORMATION
  Report Type: 
  Country: None (occurrence: None)
  Receive Date: 20071115
  Receipt Date: 20071115
  Transmission Date: 20080405
  Serious: Yes (Life-Threatening, Hospitalization)
  Sender: FDA-Public Use
  Company Number: None

PATIENT
  Age: 18 Year
  Sex: Female

DRUGS (4)
  1. THALIDOMIDE [Suspect]
     Indication: MEDULLOBLASTOMA
     Dosage: 300MG QD PO
     Route: 048
     Dates: start: 20071022, end: 20071111
  2. ETOPOSIDE [Suspect]
     Indication: MEDULLOBLASTOMA
     Dosage: 77MG QD PO
     Route: 048
     Dates: start: 20071022, end: 20071111
  3. CELEBREX [Concomitant]
  4. FENOFIBRATE [Concomitant]

REACTIONS (4)
  - BACTERIAL INFECTION [None]
  - BLOOD CULTURE POSITIVE [None]
  - NEUTROPHIL COUNT ABNORMAL [None]
  - WHITE BLOOD CELL COUNT ABNORMAL [None]
